FAERS Safety Report 4895994-4 (Version None)
Quarter: 2006Q1

REPORT INFORMATION
  Report Type: 
  Country: None (occurrence: None)
  Receive Date: 20060125
  Receipt Date: 20060117
  Transmission Date: 20060701
  Serious: Yes (Death, Other)
  Sender: FDA-Public Use
  Company Number: 2005-11-1652

PATIENT
  Sex: Male

DRUGS (1)
  1. INTRON A [Suspect]
     Dosage: 3 MIU 3XWK SUBCUTANEOUS
     Route: 058
     Dates: start: 20030101

REACTIONS (2)
  - CONFUSIONAL STATE [None]
  - PHARMACEUTICAL PRODUCT COMPLAINT [None]
